FAERS Safety Report 18273554 (Version 2)
Quarter: 2020Q4

REPORT INFORMATION
  Report Type: Spontaneous
  Country: DE (occurrence: DE)
  Receive Date: 20200916
  Receipt Date: 20201009
  Transmission Date: 20210113
  Serious: No
  Sender: FDA-Public Use
  Company Number: DE-JNJFOC-20200841836

PATIENT

DRUGS (3)
  1. DUROGESIC SMAT [Suspect]
     Active Substance: FENTANYL
     Indication: PRODUCT USED FOR UNKNOWN INDICATION
     Dosage: 25 MCG/HR
     Route: 062
  2. DUROGESIC SMAT [Suspect]
     Active Substance: FENTANYL
  3. DUROGESIC SMAT [Suspect]
     Active Substance: FENTANYL

REACTIONS (1)
  - Product packaging quantity issue [Unknown]
